FAERS Safety Report 6716202-5 (Version None)
Quarter: 2010Q2

REPORT INFORMATION
  Report Type: 
  Country: None (occurrence: None)
  Receive Date: 20100506
  Receipt Date: 20100506
  Transmission Date: 20101027
  Serious: Yes (Other)
  Sender: FDA-Public Use
  Company Number: None

PATIENT
  Age: 38 Year
  Sex: Female
  Weight: 99.7913 kg

DRUGS (8)
  1. TYSABRI [Suspect]
     Indication: RELAPSING-REMITTING MULTIPLE SCLEROSIS
     Dosage: 300 MG MONTHLY IV DRIP
     Route: 041
     Dates: start: 20061127, end: 20100308
  2. ZOLPIDEM [Concomitant]
  3. BUMEX [Concomitant]
  4. LEVOXYL [Concomitant]
  5. MODAFINIL [Concomitant]
  6. ESCITALOPRAM [Concomitant]
  7. TOPIRAMATE [Concomitant]
  8. TYLANOL WITH CODEINE [Concomitant]

REACTIONS (3)
  - IMPAIRED HEALING [None]
  - TONGUE NEOPLASM MALIGNANT STAGE UNSPECIFIED [None]
  - TONGUE ULCERATION [None]
